FAERS Safety Report 8455784-2 (Version None)
Quarter: 2012Q2

REPORT INFORMATION
  Report Type: 
  Country: None (occurrence: None)
  Receive Date: 20120621
  Receipt Date: 20120515
  Transmission Date: 20120825
  Serious: No
  Sender: FDA-Public Use
  Company Number: US-TEVA-328861USA

PATIENT
  Sex: Male

DRUGS (5)
  1. PREGABALIN [Concomitant]
  2. FENTORA [Suspect]
     Indication: BACK PAIN
     Route: 002
  3. BACLOFEN [Concomitant]
  4. LIDOCAINE [Concomitant]
  5. DULOXETINE HYDROCHLORIDE [Concomitant]

REACTIONS (4)
  - EXPIRED DRUG ADMINISTERED [None]
  - OFF LABEL USE [None]
  - SOMNOLENCE [None]
  - DRUG INEFFECTIVE [None]
